FAERS Safety Report 6195469-9 (Version None)
Quarter: 2009Q2

REPORT INFORMATION
  Report Type: 
  Country: None (occurrence: None)
  Receive Date: 20090519
  Receipt Date: 20090513
  Transmission Date: 20091009
  Serious: Yes (Hospitalization, Other)
  Sender: FDA-Public Use
  Company Number: US-ABBOTT-09P-163-0573425-00

PATIENT
  Sex: Female

DRUGS (3)
  1. DEPAKOTE [Suspect]
     Indication: SCHIZOPHRENIA
     Route: 048
  2. CLOZAPINE [Suspect]
     Indication: SCHIZOPHRENIA
     Route: 048
     Dates: start: 20081001, end: 20090401
  3. LITHIUM [Suspect]
     Indication: SCHIZOPHRENIA
     Route: 048

REACTIONS (5)
  - ENCEPHALOPATHY [None]
  - FACIAL PALSY [None]
  - NAUSEA [None]
  - SYNCOPE [None]
  - VOMITING [None]
